FAERS Safety Report 23237578 (Version 2)
Quarter: 2023Q4

REPORT INFORMATION
  Report Type: Spontaneous
  Country: FR (occurrence: FR)
  Receive Date: 20231128
  Receipt Date: 20231228
  Transmission Date: 20240110
  Serious: Yes (Disabling, Other)
  Sender: FDA-Public Use
  Company Number: FR-Vifor Pharma-VIT-2023-09293

PATIENT
  Age: 59 Year
  Sex: Female
  Weight: 68.5 kg

DRUGS (12)
  1. KORSUVA [Suspect]
     Active Substance: DIFELIKEFALIN ACETATE
     Indication: Product used for unknown indication
     Dosage: 0.8 (UNSPECIFIED UNIT)
     Route: 042
     Dates: start: 20230928, end: 20231115
  2. IMOVANE [Concomitant]
     Active Substance: ZOPICLONE
     Indication: Sleep disorder
     Dosage: 1 DOSAGE FORMS (1 DOSAGE FORMS, 1 IN 24 HR)
     Dates: start: 20230819, end: 20231115
  3. BETAHISTINE [Concomitant]
     Active Substance: BETAHISTINE
     Indication: Vertigo
     Dosage: ONGOING
     Dates: start: 20230114
  4. CALCIUM CARBONATE\CHOLECALCIFEROL [Concomitant]
     Active Substance: CALCIUM CARBONATE\CHOLECALCIFEROL
     Dosage: 3 SACHETS, ONGOING
     Dates: start: 20210525
  5. COVERAN [Concomitant]
     Indication: Hypertension
     Dosage: 10 MG/10, ONGOING
     Dates: start: 20220415
  6. PAROXETINE HYDROCHLORIDE [Concomitant]
     Active Substance: PAROXETINE HYDROCHLORIDE\PAROXETINE HYDROCHLORIDE ANHYDROUS
     Indication: Antidepressant therapy
     Dosage: ONGOING
     Dates: start: 20231212
  7. URAPIDIL [Concomitant]
     Active Substance: URAPIDIL
     Indication: Hypertension
     Dosage: 2 GEL/DAY OF DIALYSIS
     Dates: start: 20220415
  8. FOSRENOL [Concomitant]
     Active Substance: LANTHANUM CARBONATE
     Indication: Chelation therapy
     Dosage: ONGOING
     Dates: start: 20210528
  9. KARDEGIC [Concomitant]
     Active Substance: ASPIRIN DL-LYSINE
     Indication: Platelet aggregation inhibition
     Dosage: ONGOING
     Dates: start: 20231103
  10. KAYEXALATE [Concomitant]
     Active Substance: SODIUM POLYSTYRENE SULFONATE
     Indication: Chelation therapy
     Dosage: 1 SPOON MEASURE, ONGOING
     Dates: start: 20190223
  11. CINACALCET HYDROCHLORIDE [Concomitant]
     Active Substance: CINACALCET HYDROCHLORIDE
     Indication: Mineral supplementation
     Dosage: ONGOING
     Dates: start: 20200901
  12. RABEPRAZOLE SODIUM [Concomitant]
     Active Substance: RABEPRAZOLE SODIUM
     Dosage: ONGOING
     Dates: start: 20230915

REACTIONS (3)
  - Hallucination [Recovered/Resolved]
  - Paraesthesia [Recovered/Resolved]
  - Confusional state [Recovered/Resolved]

NARRATIVE: CASE EVENT DATE: 20231102
